FAERS Safety Report 5099861-5 (Version None)
Quarter: 2006Q3

REPORT INFORMATION
  Report Type: 
  Country: None (occurrence: None)
  Receive Date: 20060908
  Receipt Date: 20060828
  Transmission Date: 20061208
  Serious: Yes (Other)
  Sender: FDA-Public Use
  Company Number: 2006UW17203

PATIENT
  Sex: Male

DRUGS (2)
  1. SEROQUEL [Suspect]
     Indication: BIPOLAR DISORDER
     Route: 048
     Dates: start: 20060826, end: 20060826
  2. CARBOLITIUM [Concomitant]
     Indication: BIPOLAR DISORDER
     Dosage: START DATE=}5 YEARS
     Route: 048

REACTIONS (4)
  - DIZZINESS [None]
  - MUSCLE RIGIDITY [None]
  - SEDATION [None]
  - SENSORY LOSS [None]
